FAERS Safety Report 8575617-3 (Version None)
Quarter: 2012Q3

REPORT INFORMATION
  Report Type: 
  Country: None (occurrence: None)
  Receive Date: 20120807
  Receipt Date: 20120731
  Transmission Date: 20120928
  Serious: Yes (Life-Threatening, Hospitalization, Other)
  Sender: FDA-Public Use
  Company Number: JP-PFIZER INC-2012172532

PATIENT
  Age: 59 Year
  Sex: Male
  Weight: 68 kg

DRUGS (10)
  1. FENTANYL-100 [Concomitant]
     Dosage: UNK
     Dates: start: 20120616
  2. LYRICA [Suspect]
     Indication: PAIN IN EXTREMITY
     Dosage: 600 MG, 1X/DAY
     Route: 048
     Dates: start: 20110901
  3. LYRICA [Suspect]
     Dosage: 100 MG, 1X/DAY
     Route: 048
     Dates: start: 20120602, end: 20120611
  4. FENTANYL-100 [Concomitant]
     Indication: PAIN
     Dosage: 2.1 MG/DAY
     Route: 062
     Dates: start: 20120526, end: 20120611
  5. CODEINE PHOSPHATE [Concomitant]
     Dosage: 20 MG, 1X/DAY
     Route: 048
     Dates: start: 20120210, end: 20120420
  6. BUPRENORPHINE [Concomitant]
     Dosage: 10 MG/DAY
     Route: 062
     Dates: start: 20110901, end: 20120526
  7. LYRICA [Suspect]
     Indication: BACK PAIN
     Dosage: 225 MG, 1X/DAY
     Route: 048
     Dates: start: 20120101, end: 20120101
  8. LYRICA [Suspect]
     Dosage: UNK
     Dates: start: 20120616, end: 20120630
  9. AMITRIPTYLINE HCL [Concomitant]
     Indication: PAIN
     Dosage: 0.5 MG, 1X/DAY
     Route: 048
     Dates: start: 20090419
  10. MORPHINE HYDROCHLORIDE [Concomitant]
     Indication: PAIN
     Dosage: 0.5 MG, 3X/DAY
     Route: 048
     Dates: start: 20120421

REACTIONS (3)
  - CONGESTIVE CARDIOMYOPATHY [None]
  - VENTRICULAR EXTRASYSTOLES [None]
  - LOSS OF CONSCIOUSNESS [None]
